FAERS Safety Report 9722962 (Version 1)
Quarter: 2013Q4

REPORT INFORMATION
  Report Type: Spontaneous
  Country: US (occurrence: None)
  Receive Date: 20131127
  Receipt Date: 20131127
  Transmission Date: 20140711
  Serious: Yes (Hospitalization)
  Sender: FDA-Public Use
  Company Number: None

PATIENT
  Age: 38 Year
  Sex: Female
  Weight: 93.44 kg

DRUGS (1)
  1. XARELTO [Suspect]
     Indication: EMBOLISM
     Dosage: 1 TAB ONCE DAILY TAKEN BY MOUTH
     Dates: start: 20131115, end: 20131123

REACTIONS (5)
  - Migraine [None]
  - Back pain [None]
  - Flank pain [None]
  - Sleep disorder [None]
  - Nausea [None]
